FAERS Safety Report 18703247 (Version 3)
Quarter: 2022Q2

REPORT INFORMATION
  Report Type: Spontaneous
  Country: BR (occurrence: BR)
  Receive Date: 20210105
  Receipt Date: 20220405
  Transmission Date: 20220720
  Serious: No
  Sender: FDA-Public Use
  Company Number: NVSC2020BR343278

PATIENT
  Sex: Male

DRUGS (2)
  1. BRINZOLAMIDE\TIMOLOL MALEATE [Suspect]
     Active Substance: BRINZOLAMIDE\TIMOLOL MALEATE
     Indication: Intracranial pressure increased
     Dosage: 6 ML, TID (MORNING, AFTERNOON, NIGHT)
     Route: 047
     Dates: start: 201709
  2. LOSARTAN [Concomitant]
     Active Substance: LOSARTAN
     Indication: Hypertension
     Dosage: 2 DF, BID ((ONE IN THE MORNING AND ONE AT NIGHT))
     Route: 048

REACTIONS (1)
  - Dysgraphia [Unknown]

NARRATIVE: CASE EVENT DATE: 20180101
